FAERS Safety Report 4432165-X (Version None)
Quarter: 2004Q3

REPORT INFORMATION
  Report Type: 
  Country: None (occurrence: None)
  Receive Date: 20040819
  Receipt Date: 20040806
  Transmission Date: 20050211
  Serious: Yes (Hospitalization, Other)
  Sender: FDA-Public Use
  Company Number: 2003143478US

PATIENT
  Sex: Female
  Weight: 120 kg

DRUGS (2)
  1. XANAX [Suspect]
     Indication: PANIC DISORDER
     Dosage: SEE IMAGE
     Route: 048
  2. XANAX [Suspect]
     Indication: PANIC DISORDER
     Dosage: SEE IMAGE
     Route: 048
     Dates: start: 19990101

REACTIONS (25)
  - ABDOMINAL PAIN [None]
  - ANGER [None]
  - ANXIETY [None]
  - CHEST PAIN [None]
  - DEHYDRATION [None]
  - DRUG DEPENDENCE [None]
  - DRUG WITHDRAWAL SYNDROME [None]
  - DRY MOUTH [None]
  - DYSPNOEA [None]
  - HEADACHE [None]
  - MASTITIS [None]
  - MENTAL DISORDER [None]
  - MOOD SWINGS [None]
  - MUSCLE SPASMS [None]
  - NASAL DISCOMFORT [None]
  - NASAL DRYNESS [None]
  - ORAL DISCOMFORT [None]
  - PARAESTHESIA [None]
  - RHINORRHOEA [None]
  - SINUS CONGESTION [None]
  - TEETH BRITTLE [None]
  - TREATMENT NONCOMPLIANCE [None]
  - UNEVALUABLE EVENT [None]
  - URTICARIA [None]
  - VITAMIN D DEFICIENCY [None]
